FAERS Safety Report 25698672 (Version 1)
Quarter: 2025Q3

REPORT INFORMATION
  Report Type: Report from Study
  Country: EU (occurrence: EU)
  Receive Date: 20250819
  Receipt Date: 20250819
  Transmission Date: 20251021
  Serious: Yes (Other)
  Sender: SANOFI AVENTIS
  Company Number: EU-DialogSolutions-SAAVPROD-PI809485-C4

PATIENT
  Sex: Female

DRUGS (13)
  1. ENOXAPARIN SODIUM [Suspect]
     Active Substance: ENOXAPARIN SODIUM
  2. ENOXAPARIN SODIUM [Suspect]
     Active Substance: ENOXAPARIN SODIUM
  3. ENOXAPARIN SODIUM [Suspect]
     Active Substance: ENOXAPARIN SODIUM
  4. ACETAZOLAMIDE [Suspect]
     Active Substance: ACETAZOLAMIDE
  5. ACETAZOLAMIDE [Suspect]
     Active Substance: ACETAZOLAMIDE
  6. ACETAZOLAMIDE [Suspect]
     Active Substance: ACETAZOLAMIDE
  7. ACETAZOLAMIDE [Suspect]
     Active Substance: ACETAZOLAMIDE
  8. RACECADOTRIL [Suspect]
     Active Substance: RACECADOTRIL
  9. RACECADOTRIL [Suspect]
     Active Substance: RACECADOTRIL
  10. CIMETIDINE [Suspect]
     Active Substance: CIMETIDINE
  11. CIMETIDINE [Suspect]
     Active Substance: CIMETIDINE
  12. CIMETIDINE [Suspect]
     Active Substance: CIMETIDINE
  13. CIMETIDINE [Suspect]
     Active Substance: CIMETIDINE

REACTIONS (2)
  - Drug reaction with eosinophilia and systemic symptoms [Unknown]
  - Rash maculo-papular [Unknown]
